FAERS Safety Report 12120131 (Version 1)
Quarter: 2016Q1

REPORT INFORMATION
  Report Type: Spontaneous
  Country: US (occurrence: US)
  Receive Date: 20160226
  Receipt Date: 20160226
  Transmission Date: 20160526
  Serious: No
  Sender: FDA-Public Use
  Company Number: US-009507513-1602USA008823

PATIENT
  Age: 19 Year
  Sex: Female
  Weight: 57.14 kg

DRUGS (5)
  1. NEXPLANON [Suspect]
     Active Substance: ETONOGESTREL
     Indication: CONTRACEPTION
     Dosage: 68 MG, EVERY 3 YEARS
     Route: 059
     Dates: start: 20160127, end: 20160217
  2. SEROQUEL [Concomitant]
     Active Substance: QUETIAPINE FUMARATE
  3. IBUPROFEN. [Concomitant]
     Active Substance: IBUPROFEN
  4. TYLENOL [Concomitant]
     Active Substance: ACETAMINOPHEN
  5. FLUVOXAMINE MALEATE. [Concomitant]
     Active Substance: FLUVOXAMINE MALEATE

REACTIONS (5)
  - Device expulsion [Recovered/Resolved]
  - Blister rupture [Recovering/Resolving]
  - Implant site mass [Recovering/Resolving]
  - Pain [Recovering/Resolving]
  - Medical device site fibrosis [Recovering/Resolving]

NARRATIVE: CASE EVENT DATE: 20160127
